FAERS Safety Report 10505412 (Version 1)
Quarter: 2014Q4

REPORT INFORMATION
  Report Type: Spontaneous
  Country: DE (occurrence: DE)
  Receive Date: 20141008
  Receipt Date: 20141008
  Transmission Date: 20150528
  Serious: Yes (Hospitalization, Other)
  Sender: FDA-Public Use
  Company Number: DE-TEVA-512422GER

PATIENT
  Age: 1 Day
  Sex: Female

DRUGS (3)
  1. RISPERIDONE. [Suspect]
     Active Substance: RISPERIDONE
     Indication: DEPRESSION
     Dosage: 4 MILLIGRAM DAILY;
     Route: 064
     Dates: start: 20121123, end: 20130504
  2. VENLAFAXINE [Suspect]
     Active Substance: VENLAFAXINE HYDROCHLORIDE
     Indication: DEPRESSION
     Dosage: 250 [MG/D ]/ REDUCTION TO 225 MG/D
     Route: 064
     Dates: start: 20121123, end: 20130801
  3. INSULIN [Concomitant]
     Active Substance: INSULIN NOS
     Indication: GESTATIONAL DIABETES
     Dosage: 40 IU (INTERNATIONAL UNIT) DAILY;
     Route: 064
     Dates: start: 20130615, end: 20130801

REACTIONS (6)
  - Drug withdrawal syndrome neonatal [Recovered/Resolved]
  - Foetal exposure during pregnancy [Unknown]
  - Neonatal tachypnoea [Recovered/Resolved]
  - Hyperbilirubinaemia neonatal [Recovered/Resolved]
  - Generalised tonic-clonic seizure [Unknown]
  - Large for dates baby [Unknown]

NARRATIVE: CASE EVENT DATE: 20130801
